FAERS Safety Report 17111475 (Version 1)
Quarter: 2019Q4

REPORT INFORMATION
  Report Type: Spontaneous
  Country: CA (occurrence: CA)
  Receive Date: 20191204
  Receipt Date: 20191204
  Transmission Date: 20200122
  Serious: Yes (Death, Other)
  Sender: FDA-Public Use
  Company Number: NVSC2019CA049549

PATIENT
  Age: 43 Year
  Sex: Male

DRUGS (1)
  1. MIDOSTAURIN [Suspect]
     Active Substance: MIDOSTAURIN
     Indication: ACUTE MYELOID LEUKAEMIA
     Dosage: UNK
     Route: 065

REACTIONS (6)
  - Transaminases increased [Unknown]
  - Death [Fatal]
  - Influenza [Unknown]
  - Encephalopathy [Unknown]
  - Malaise [Unknown]
  - Graft versus host disease [Unknown]

NARRATIVE: CASE EVENT DATE: 201901
